FAERS Safety Report 24432222 (Version 2)
Quarter: 2024Q4

REPORT INFORMATION
  Report Type: Spontaneous
  Country: US (occurrence: US)
  Receive Date: 20241014
  Receipt Date: 20241021
  Transmission Date: 20250115
  Serious: No
  Sender: ABBVIE
  Company Number: US-ABBVIE-5954796

PATIENT
  Sex: Female

DRUGS (2)
  1. LINZESS [Suspect]
     Active Substance: LINACLOTIDE
     Indication: Constipation
     Dosage: STRENGTH 145MCG
     Route: 048
     Dates: start: 2021
  2. LINZESS [Suspect]
     Active Substance: LINACLOTIDE
     Indication: Constipation
     Dosage: STRENGTH 145MCG
     Route: 048

REACTIONS (6)
  - Faecaloma [Not Recovered/Not Resolved]
  - Balance disorder [Not Recovered/Not Resolved]
  - Therapeutic product effect decreased [Not Recovered/Not Resolved]
  - Constipation [Not Recovered/Not Resolved]
  - Walking aid user [Unknown]
  - Off label use [Unknown]

NARRATIVE: CASE EVENT DATE: 20230101
